FAERS Safety Report 24162022 (Version 1)
Quarter: 2024Q3

REPORT INFORMATION
  Report Type: Spontaneous
  Country: US (occurrence: US)
  Receive Date: 20240801
  Receipt Date: 20240801
  Transmission Date: 20241016
  Serious: No
  Sender: GLENMARK
  Company Number: US-GLENMARK PHARMACEUTICALS-2024GMK090839

PATIENT

DRUGS (1)
  1. MUPIROCIN [Suspect]
     Active Substance: MUPIROCIN
     Indication: Dermatitis
     Dosage: UNK, BID (APPLY TOPICALLY TWICE DAILY)
     Route: 061

REACTIONS (1)
  - Product prescribing issue [Unknown]
